FAERS Safety Report 25074002 (Version 1)
Quarter: 2025Q1

REPORT INFORMATION
  Report Type: Other
  Country: GB (occurrence: GB)
  Receive Date: 20250313
  Receipt Date: 20250313
  Transmission Date: 20250408
  Serious: Yes (Other)
  Sender: STRIDES
  Company Number: None

PATIENT
  Age: 17 Year
  Sex: Female
  Weight: 50 kg

DRUGS (1)
  1. FLUOXETINE [Suspect]
     Active Substance: FLUOXETINE HYDROCHLORIDE
     Indication: Illness anxiety disorder
     Route: 065
     Dates: start: 20250219

REACTIONS (7)
  - Brain fog [Recovering/Resolving]
  - Eye pain [Not Recovered/Not Resolved]
  - Paraesthesia [Recovering/Resolving]
  - Flatulence [Recovering/Resolving]
  - Dry mouth [Recovering/Resolving]
  - Rash [Not Recovered/Not Resolved]
  - Depersonalisation/derealisation disorder [Not Recovered/Not Resolved]

NARRATIVE: CASE EVENT DATE: 20250219
